FAERS Safety Report 4840209-6 (Version None)
Quarter: 2005Q4

REPORT INFORMATION
  Report Type: 
  Country: None (occurrence: None)
  Receive Date: 20051125
  Receipt Date: 20051114
  Transmission Date: 20060501
  Serious: Yes (Death)
  Sender: FDA-Public Use
  Company Number: MEDI-0003833

PATIENT
  Age: 3 Month
  Sex: Male
  Weight: 3.35 kg

DRUGS (3)
  1. SYNAGIS [Suspect]
     Indication: ANTIVIRAL PROPHYLAXIS
     Dosage: 51 MG, 1 IN 30 D, INTRAMUSCULAR
     Route: 030
     Dates: start: 20051107, end: 20051107
  2. URSODIOL (URSODEOXYCHOLIC ACID) [Concomitant]
  3. ADEK (ERGOCALCIFEROL, ASCORBIC ACID, TOCOPHEROL, FOLIC ACID, RETINOL, [Concomitant]

REACTIONS (1)
  - DEATH [None]
